FAERS Safety Report 13065807 (Version 10)
Quarter: 2018Q4

REPORT INFORMATION
  Report Type: Spontaneous
  Country: US (occurrence: US)
  Receive Date: 20161227
  Receipt Date: 20181126
  Transmission Date: 20190204
  Serious: Yes (Other)
  Sender: FDA-Public Use
  Company Number: US-PFIZER INC-2016596056

PATIENT
  Age: 70 Year
  Sex: Female
  Weight: 72 kg

DRUGS (12)
  1. GENOTROPIN [Suspect]
     Active Substance: SOMATROPIN
     Dosage: UNK (TAKING IT EVERY FOUR DAYS)
  2. GENOTROPIN [Suspect]
     Active Substance: SOMATROPIN
     Indication: GROWTH HORMONE DEFICIENCY
     Dosage: 0.3 MG, 1X/DAY  (AT NIGHT)
  3. GENOTROPIN [Suspect]
     Active Substance: SOMATROPIN
     Dosage: 0.3 MG, 1X/DAY(EVERY NIGHT BEFORE BED)
     Dates: end: 20171205
  4. GENOTROPIN [Suspect]
     Active Substance: SOMATROPIN
     Dosage: 0.3 MG, DAILY
  5. GENOTROPIN [Suspect]
     Active Substance: SOMATROPIN
     Dosage: 0.02 MG, (EVERY 3 DAYS)
  6. GENOTROPIN [Suspect]
     Active Substance: SOMATROPIN
     Dosage: UNK, 1X/DAY [0.03 INJECTION EVERY NIGHT]
  7. GENOTROPIN [Suspect]
     Active Substance: SOMATROPIN
     Indication: PITUITARY TUMOUR
     Dosage: UNK(EVERY OTHER DAY)
  8. GENOTROPIN [Suspect]
     Active Substance: SOMATROPIN
     Dosage: UNK [EVERY 3-4 DAYS/0.01 INJECTION]
  9. GENOTROPIN [Suspect]
     Active Substance: SOMATROPIN
     Dosage: UNK(EVERY THIRD DAY)
  10. GENOTROPIN [Suspect]
     Active Substance: SOMATROPIN
     Dosage: UNK (ON AND OFF)
  11. SYNTHROID [Concomitant]
     Active Substance: LEVOTHYROXINE SODIUM
     Indication: POST PROCEDURAL HYPOTHYROIDISM
     Dosage: 0.75 MG, 1X/DAY
     Route: 048
  12. SYNTHROID [Concomitant]
     Active Substance: LEVOTHYROXINE SODIUM
     Indication: THYROID DISORDER
     Dosage: 88 UG, 1X/DAY
     Route: 048

REACTIONS (11)
  - Intentional product misuse [Unknown]
  - Tension [Unknown]
  - Body height decreased [Unknown]
  - Impaired driving ability [Unknown]
  - Headache [Unknown]
  - Pituitary tumour [Unknown]
  - Memory impairment [Unknown]
  - Intentional product use issue [Unknown]
  - Sinusitis [Unknown]
  - Gastrooesophageal reflux disease [Unknown]
  - Decreased appetite [Unknown]

NARRATIVE: CASE EVENT DATE: 201709
